FAERS Safety Report 16635162 (Version 1)
Quarter: 2019Q3

REPORT INFORMATION
  Report Type: Report from Study
  Country: FR (occurrence: FR)
  Receive Date: 20190726
  Receipt Date: 20190726
  Transmission Date: 20191004
  Serious: Yes (Death, Life-Threatening)
  Sender: FDA-Public Use
  Company Number: FR-BAYER-2019-124879

PATIENT
  Age: 57 Year
  Sex: Male
  Weight: 100 kg

DRUGS (6)
  1. RED BLOOD CELLS [Concomitant]
     Active Substance: HUMAN RED BLOOD CELL
     Indication: PACKED RED BLOOD CELL TRANSFUSION
     Dosage: 924
     Route: 065
     Dates: start: 20190401
  2. HEPARIN [Concomitant]
     Active Substance: HEPARIN SODIUM
     Indication: ANTICOAGULANT THERAPY
     Dosage: TOTAL HEPARIN DOSAGE DURING SURGERY = 35
     Route: 065
     Dates: start: 20190401, end: 20190401
  3. TRASYLOL [Suspect]
     Active Substance: APROTININ
     Indication: BENTALL PROCEDURE
     Dosage: 250 ML, QD
     Route: 065
     Dates: start: 20190401, end: 20190401
  4. FIBRINOGEN [Concomitant]
     Active Substance: FIBRINOGEN HUMAN
     Indication: HAEMORRHAGE
     Dosage: 3
     Route: 065
     Dates: start: 20190401
  5. PLATELETS [Concomitant]
     Active Substance: HUMAN PLATELET, ALLOGENIC
     Indication: PLATELET TRANSFUSION
     Dosage: 355
     Route: 065
     Dates: start: 2019
  6. PLASMA [Concomitant]
     Active Substance: HUMAN PLASMA
     Indication: TRANSFUSION
     Dosage: 1054
     Route: 065
     Dates: start: 20190403

REACTIONS (2)
  - Product use in unapproved indication [Recovered/Resolved]
  - Pulmonary embolism [Fatal]

NARRATIVE: CASE EVENT DATE: 20190401
